FAERS Safety Report 7335793-7 (Version None)
Quarter: 2011Q1

REPORT INFORMATION
  Report Type: 
  Country: None (occurrence: None)
  Receive Date: 20110307
  Receipt Date: 20110222
  Transmission Date: 20110831
  Serious: Yes (Hospitalization)
  Sender: FDA-Public Use
  Company Number: KR-BAYER-2011-016865

PATIENT
  Age: 48 Year
  Sex: Female

DRUGS (2)
  1. WARFARIN [Suspect]
     Indication: AORTIC VALVE REPLACEMENT
  2. ASPIRIN [Suspect]
     Indication: AORTIC VALVE REPLACEMENT
     Route: 048

REACTIONS (2)
  - ABDOMINAL COMPARTMENT SYNDROME [None]
  - RETROPERITONEAL HAEMORRHAGE [None]
